FAERS Safety Report 6491948-5 (Version None)
Quarter: 2009Q4

REPORT INFORMATION
  Report Type: 
  Country: None (occurrence: None)
  Receive Date: 20091208
  Receipt Date: 20091125
  Transmission Date: 20100525
  Serious: Yes (Other)
  Sender: FDA-Public Use
  Company Number: 8055293

PATIENT
  Age: 9 Year
  Sex: Female
  Weight: 35 kg

DRUGS (2)
  1. KEPPRA [Suspect]
     Dosage: (2000 MG ORAL)
     Route: 048
     Dates: start: 20091101, end: 20091101
  2. TRILEPTAL [Suspect]
     Dosage: (300 MG ORAL)
     Route: 048
     Dates: start: 20091101, end: 20091101

REACTIONS (1)
  - ACCIDENTAL DRUG INTAKE BY CHILD [None]
